FAERS Safety Report 9119396 (Version 1)
Quarter: 2013Q1

REPORT INFORMATION
  Report Type: Spontaneous
  Country: US (occurrence: US)
  Receive Date: 20130226
  Receipt Date: 20130226
  Transmission Date: 20140127
  Serious: Yes (Other)
  Sender: FDA-Public Use
  Company Number: US-ELI_LILLY_AND_COMPANY-US201302006193

PATIENT
  Sex: Female

DRUGS (5)
  1. ZYPREXA [Suspect]
     Dosage: 10 MG, UNKNOWN
  2. ZYPREXA [Suspect]
     Dosage: 15 MG, UNKNOWN
  3. ZYPREXA [Suspect]
     Dosage: 20 MG, UNKNOWN
  4. ZYPREXA [Suspect]
     Dosage: 30 MG, UNKNOWN
     Dates: end: 20130212
  5. OLANZAPINE [Suspect]
     Dosage: 1 DF, SINGLE

REACTIONS (9)
  - Hypertension [Unknown]
  - Epistaxis [Unknown]
  - Vision blurred [Unknown]
  - Tinnitus [Unknown]
  - Hyperhidrosis [Unknown]
  - Abdominal discomfort [Unknown]
  - Nausea [Unknown]
  - Dizziness [Unknown]
  - Prescribed overdose [Unknown]
